FAERS Safety Report 22143730 (Version 2)
Quarter: 2023Q2

REPORT INFORMATION
  Report Type: Spontaneous
  Country: VE (occurrence: VE)
  Receive Date: 20230327
  Receipt Date: 20230504
  Transmission Date: 20230722
  Serious: Yes (Hospitalization)
  Sender: FDA-Public Use
  Company Number: VE-SA-SAC20220913001160

PATIENT

DRUGS (3)
  1. LARONIDASE [Suspect]
     Active Substance: LARONIDASE
     Indication: Mucopolysaccharidosis I
     Dosage: 4 DF, QW
     Route: 041
     Dates: start: 20201012
  2. LARONIDASE [Suspect]
     Active Substance: LARONIDASE
     Dosage: 4 DF, Q6D
     Route: 041
  3. ACETAMINOPHEN [Concomitant]
     Active Substance: ACETAMINOPHEN
     Indication: Pyrexia
     Dosage: UNK
     Dates: start: 20230315

REACTIONS (14)
  - Back pain [Recovering/Resolving]
  - Abdominal discomfort [Recovering/Resolving]
  - White blood cell count increased [Recovering/Resolving]
  - Influenza [Recovering/Resolving]
  - Cough [Recovering/Resolving]
  - Muscle spasms [Not Recovered/Not Resolved]
  - Dyspepsia [Recovering/Resolving]
  - Abdominal pain upper [Recovering/Resolving]
  - Vomiting [Recovered/Resolved]
  - Vomiting [Recovering/Resolving]
  - Pyrexia [Recovered/Resolved]
  - Arthralgia [Recovered/Resolved]
  - Tooth extraction [Recovered/Resolved]
  - Inappropriate schedule of product administration [Unknown]

NARRATIVE: CASE EVENT DATE: 20220801
